FAERS Safety Report 7315575-2 (Version None)
Quarter: 2011Q1

REPORT INFORMATION
  Report Type: 
  Country: None (occurrence: None)
  Receive Date: 20110215
  Receipt Date: 20110131
  Transmission Date: 20110831
  Serious: Yes (Hospitalization)
  Sender: FDA-Public Use
  Company Number: 2011000574

PATIENT
  Age: 69 Year
  Sex: Male

DRUGS (9)
  1. ATACAND [Concomitant]
  2. ERLOTINIB (ERLOTINIB) (TABLET) (ERLOTINIB) [Suspect]
     Indication: PRODUCT USED FOR UNKNOWN INDICATION
     Dosage: (100 MG,QD),ORAL
     Route: 048
  3. METOPROLOL (METOPROLOL) [Concomitant]
  4. INSPIRYL (SALBUTAMOL SULFATE) [Concomitant]
  5. PANTOPRAZOL [Concomitant]
  6. DIGITOXIN [Concomitant]
  7. INNOHEP [Concomitant]
  8. GEMCITABINE [Suspect]
     Indication: PRODUCT USED FOR UNKNOWN INDICATION
     Dosage: (1570 MG)
  9. THEOPHYLLINE [Concomitant]

REACTIONS (2)
  - ULCERATIVE KERATITIS [None]
  - VISION BLURRED [None]
